FAERS Safety Report 10787757 (Version 1)
Quarter: 2015Q1

REPORT INFORMATION
  Report Type: Spontaneous
  Country: JP (occurrence: JP)
  Receive Date: 20150212
  Receipt Date: 20150212
  Transmission Date: 20150721
  Serious: Yes (Other)
  Sender: FDA-Public Use
  Company Number: JP-ROCHE-1537232

PATIENT
  Age: 77 Year
  Sex: Female

DRUGS (1)
  1. XELODA [Suspect]
     Active Substance: CAPECITABINE
     Indication: COLON CANCER
     Dosage: UNCERTAIN DOSAGE AND B METHOD
     Route: 048
     Dates: start: 201410

REACTIONS (1)
  - Corneal erosion [Unknown]

NARRATIVE: CASE EVENT DATE: 201501
